FAERS Safety Report 6535891-1 (Version None)
Quarter: 2010Q1

REPORT INFORMATION
  Report Type: 
  Country: None (occurrence: None)
  Receive Date: 20100113
  Receipt Date: 20100105
  Transmission Date: 20100710
  Serious: Yes (Other)
  Sender: FDA-Public Use
  Company Number: PT-TEVA-219879ISR

PATIENT
  Sex: Female

DRUGS (2)
  1. COPAXONE [Suspect]
  2. CONCOMITANT DRUGS (NOT SPECIFIED) [Concomitant]

REACTIONS (1)
  - THROMBOSIS [None]
